FAERS Safety Report 15555768 (Version 1)
Quarter: 2018Q4

REPORT INFORMATION
  Report Type: Spontaneous
  Country: DK (occurrence: DK)
  Receive Date: 20181026
  Receipt Date: 20181026
  Transmission Date: 20190205
  Serious: Yes (Death)
  Sender: FDA-Public Use
  Company Number: DK-TEVA-2018-DK-969121

PATIENT
  Age: 55 Year
  Sex: Female

DRUGS (7)
  1. BIPERIDEN [Concomitant]
     Active Substance: BIPERIDEN
     Indication: ADVERSE DRUG REACTION
     Dosage: 6 MILLIGRAM DAILY; STRENGTH: 2 MG.
     Route: 048
     Dates: start: 20180516
  2. OLANZAPIN ^ACTAVIS^ [Suspect]
     Active Substance: OLANZAPINE
     Indication: BIPOLAR DISORDER
     Dosage: STRENGTH: 5 MG.?DOSE: 1 TABL WHEN NEEDED MAX 2 PER DAY.
     Route: 048
     Dates: start: 20171026
  3. POTASSIUM CHLORIDE. [Concomitant]
     Active Substance: POTASSIUM CHLORIDE
     Indication: MINERAL SUPPLEMENTATION
     Dosage: 1500 MILLIGRAM DAILY; STRENGTH: 750 MG.
     Route: 048
     Dates: start: 20140612
  4. SODIUM VALPROATE [Concomitant]
     Active Substance: VALPROATE SODIUM
     Indication: MOOD SWINGS
     Dosage: 1000 MILLIGRAM DAILY; STRENGTH: 500 MG.
     Route: 048
     Dates: start: 20170122
  5. FUROSEMIDE. [Concomitant]
     Active Substance: FUROSEMIDE
     Indication: DIURETIC THERAPY
     Dosage: 80 MILLIGRAM DAILY; STRENGTH: 40 MG.
     Route: 048
     Dates: start: 20171109
  6. TRAMADOL. [Concomitant]
     Active Substance: TRAMADOL
     Indication: PAIN
     Dosage: STRENGTH: 50 MG.?DOSE: 1 TABL PN. MAX GANGE 4
     Route: 048
     Dates: start: 20171113
  7. CALCIUM OG D-VITAMIN [Concomitant]
     Indication: MINERAL SUPPLEMENTATION
     Dosage: DOSE: 1 TABLET DAILY. STRENGTH: UNKNOWN
     Route: 048
     Dates: start: 20170102

REACTIONS (3)
  - Postmortem blood drug level increased [Fatal]
  - Toxicity to various agents [Fatal]
  - Sudden death [Fatal]

NARRATIVE: CASE EVENT DATE: 201807
